FAERS Safety Report 5795251-8 (Version None)
Quarter: 2008Q2

REPORT INFORMATION
  Report Type: 
  Country: None (occurrence: None)
  Receive Date: 20080625
  Receipt Date: 20080610
  Transmission Date: 20081010
  Serious: Yes (Hospitalization)
  Sender: FDA-Public Use
  Company Number: 2007BI020589

PATIENT
  Age: 21 Year
  Sex: Female
  Weight: 81 kg

DRUGS (3)
  1. TYSABRI [Suspect]
     Indication: MULTIPLE SCLEROSIS
     Dosage: 300 MG;QM;IV
     Route: 042
     Dates: start: 20070725
  2. CLONAZEPAM [Concomitant]
  3. BACLOFEN [Concomitant]

REACTIONS (5)
  - CONDITION AGGRAVATED [None]
  - DEPRESSION [None]
  - MUSCLE SPASMS [None]
  - NEURALGIA [None]
  - SENSORY DISTURBANCE [None]
